FAERS Safety Report 13259727 (Version 4)
Quarter: 2017Q2

REPORT INFORMATION
  Report Type: Report from Study
  Country: US (occurrence: US)
  Receive Date: 20170222
  Receipt Date: 20170421
  Transmission Date: 20170830
  Serious: Yes (Other)
  Sender: FDA-Public Use
  Company Number: US-PFIZER INC-2017027443

PATIENT
  Age: 66 Year
  Sex: Female

DRUGS (1)
  1. IBRANCE [Suspect]
     Active Substance: PALBOCICLIB
     Indication: BREAST CANCER
     Dosage: 100 MG, ONCE A DAY
     Route: 048
     Dates: start: 20170111

REACTIONS (7)
  - Anaemia [Unknown]
  - Renal impairment [Unknown]
  - Hypotension [Unknown]
  - Viral upper respiratory tract infection [Unknown]
  - Dysgeusia [Not Recovered/Not Resolved]
  - Skin fissures [Unknown]
  - Fatigue [Not Recovered/Not Resolved]

NARRATIVE: CASE EVENT DATE: 2017
